FAERS Safety Report 6025296-4 (Version None)
Quarter: 2008Q4

REPORT INFORMATION
  Report Type: 
  Country: None (occurrence: None)
  Receive Date: 20081231
  Receipt Date: 20081219
  Transmission Date: 20090506
  Serious: Yes (Other)
  Sender: FDA-Public Use
  Company Number: PHHY2008FR30802

PATIENT
  Sex: Female
  Weight: 50 kg

DRUGS (7)
  1. ACLASTA [Suspect]
     Indication: OSTEOPOROSIS
     Dosage: 5MG
     Dates: start: 20081119
  2. DOLIPRANE [Concomitant]
     Dosage: 1000 MG, BID
  3. CACIT D3 [Concomitant]
     Dosage: 1000 MG, QD
  4. RIVOTRIL [Concomitant]
     Dosage: 2 DROPS
  5. HUMIRA [Concomitant]
     Dosage: 30 MG, BIW
  6. METHOTREXATE [Concomitant]
     Dosage: 20MG PER WEEK
  7. CORTANCYL [Concomitant]
     Dosage: 5MG PER DAY

REACTIONS (5)
  - DISTURBANCE IN ATTENTION [None]
  - FEELING ABNORMAL [None]
  - LACRIMATION INCREASED [None]
  - MALAISE [None]
  - VISION BLURRED [None]
